FAERS Safety Report 4532935-3 (Version None)
Quarter: 2004Q4

REPORT INFORMATION
  Report Type: 
  Country: None (occurrence: None)
  Receive Date: 20041210
  Receipt Date: 20041108
  Transmission Date: 20050328
  Serious: No
  Sender: FDA-Public Use
  Company Number: 2004-00773

PATIENT
  Age: 68 Year
  Sex: Female
  Weight: 77.6 kg

DRUGS (3)
  1. VELCADE [Suspect]
     Indication: MULTIPLE MYELOMA
     Dosage: 0.70 MG/M2, IV BOLUS
     Route: 040
  2. THALIDOMIDE (THALIDOMIDE) [Suspect]
     Indication: MULTIPLE MYELOMA
     Dosage: 50.00 MG
     Dates: start: 20040523, end: 20040901
  3. DEXAMETHASONE [Suspect]
     Indication: MULTIPLE MYELOMA
     Dates: start: 20040523, end: 20040901

REACTIONS (3)
  - DECREASED APPETITE [None]
  - NEUROPATHY PERIPHERAL [None]
  - WEIGHT DECREASED [None]
